FAERS Safety Report 8461946-0 (Version None)
Quarter: 2012Q2

REPORT INFORMATION
  Report Type: 
  Country: None (occurrence: None)
  Receive Date: 20120618
  Receipt Date: 20120601
  Transmission Date: 20120825
  Serious: Yes (Hospitalization, Other)
  Sender: FDA-Public Use
  Company Number: 2012MA006858

PATIENT
  Age: 50 Year
  Sex: Male

DRUGS (9)
  1. BEVACIZUMAB [Concomitant]
  2. BEVACIZUMAB (BEVACIZUMAB) [Suspect]
     Indication: RECTAL CANCER
     Dosage: IV
     Route: 042
  3. IRINOTECAN HYDROCHLORIDE [Suspect]
     Indication: RECTAL CANCER
     Dosage: IV
     Route: 042
     Dates: start: 20100701
  4. IRINOTECAN HYDROCHLORIDE [Suspect]
     Indication: METASTASES TO LIVER
     Dosage: IV
     Route: 042
     Dates: start: 20100701
  5. FLUOROURACIL [Suspect]
     Indication: RECTAL CANCER
     Dosage: IV
     Route: 042
  6. FLUOROURACIL [Suspect]
     Indication: METASTASES TO LIVER
     Dosage: IV
     Route: 042
  7. FOLFOX [Concomitant]
  8. LEUCOVORIN (FOLINIC ACID) [Suspect]
     Indication: METASTASES TO LIVER
     Dosage: IV
     Route: 042
  9. LEUCOVORIN (FOLINIC ACID) [Suspect]
     Indication: RECTAL CANCER
     Dosage: IV
     Route: 042

REACTIONS (10)
  - RECTAL CANCER METASTATIC [None]
  - OCULAR ICTERUS [None]
  - HAEMORRHAGE [None]
  - HAEMATOCHEZIA [None]
  - PLATELET COUNT DECREASED [None]
  - NEOPLASM PROGRESSION [None]
  - DECREASED APPETITE [None]
  - DISSEMINATED INTRAVASCULAR COAGULATION [None]
  - FATIGUE [None]
  - DIARRHOEA [None]
